FAERS Safety Report 4846985-0 (Version None)
Quarter: 2005Q4

REPORT INFORMATION
  Report Type: 
  Country: None (occurrence: None)
  Receive Date: 20051207
  Receipt Date: 20051125
  Transmission Date: 20060501
  Serious: Yes (Hospitalization)
  Sender: FDA-Public Use
  Company Number: ES-JNJFOC-20051200534

PATIENT
  Age: 40 Year
  Sex: Male

DRUGS (2)
  1. HALOPERIDOL [Suspect]
  2. RISPERDAL [Concomitant]

REACTIONS (5)
  - GRAND MAL CONVULSION [None]
  - HYPOKALAEMIA [None]
  - HYPONATRAEMIA [None]
  - POLYDIPSIA PSYCHOGENIC [None]
  - RHABDOMYOLYSIS [None]
